FAERS Safety Report 7833020-5 (Version None)
Quarter: 2011Q4

REPORT INFORMATION
  Report Type: 
  Country: None (occurrence: None)
  Receive Date: 20111024
  Receipt Date: 20111010
  Transmission Date: 20120403
  Serious: Yes (Other)
  Sender: FDA-Public Use
  Company Number: US-ELI_LILLY_AND_COMPANY-US201103001719

PATIENT
  Sex: Male
  Weight: 70 kg

DRUGS (22)
  1. LISINOPRIL [Concomitant]
     Dosage: UNK, QD
     Route: 048
  2. RANITIDINE HCL [Concomitant]
     Route: 048
  3. FINASTERIDE [Concomitant]
     Dosage: UNK, QD
  4. CALCIUM +VIT D [Concomitant]
     Dosage: 1 DF, QD
  5. LASIX [Concomitant]
     Dosage: 1 DF, QOD
     Route: 048
  6. FORTEO [Suspect]
     Indication: OSTEOPOROSIS
     Dosage: 20 UG, DAILY (1/D)
     Route: 058
     Dates: start: 20101228
  7. FORTEO [Suspect]
     Dosage: 20 UG, QD
     Route: 058
  8. METFORMIN HCL [Concomitant]
     Dosage: 1 DF, QD
     Route: 048
  9. DOCUSATE SODIUM [Concomitant]
     Dosage: UNK, PRN
  10. PROSCAR [Concomitant]
     Dosage: 1 DF, QD
     Route: 048
  11. OXYCODONE HCL [Concomitant]
     Dosage: 1 DF, EVERY 4 HRS
     Route: 048
  12. PROPRANOLOL HYDROCHLORIDE [Concomitant]
     Dosage: 1 DF, TID
     Route: 048
  13. CLARITIN [Concomitant]
     Dosage: UNK UNK, PRN
     Route: 048
  14. HYDROMORPHONE HCL [Concomitant]
     Dosage: UNK, PRN
  15. IRON [Concomitant]
  16. ASPIRIN [Concomitant]
     Dosage: 1 DF, QD
     Route: 048
  17. FORTEO [Suspect]
     Dosage: 20 UG, QD
     Route: 058
  18. GLYBURIDE [Concomitant]
     Dosage: 1 DF, QD
  19. BYSTOLIC [Concomitant]
     Dosage: 2 DF, QD
     Route: 048
  20. VITAMIN D [Concomitant]
     Dosage: UNK
  21. ZOLOFT [Concomitant]
     Dosage: 1 DF, QD
     Route: 048
  22. AMLODIPINE BESYLATE [Concomitant]
     Dosage: 1 DF, BID
     Route: 048

REACTIONS (3)
  - SLEEP DISORDER DUE TO A GENERAL MEDICAL CONDITION [None]
  - ARTHRALGIA [None]
  - MULTIPLE MYELOMA [None]
